FAERS Safety Report 10861834 (Version 1)
Quarter: 2015Q1

REPORT INFORMATION
  Report Type: Spontaneous
  Country: US (occurrence: US)
  Receive Date: 20150224
  Receipt Date: 20150224
  Transmission Date: 20150721
  Serious: Yes (Other)
  Sender: FDA-Public Use
  Company Number: US-SA-2015SA012500

PATIENT
  Age: 65 Year
  Sex: Female

DRUGS (1)
  1. ALLEGRA-D [Suspect]
     Active Substance: FEXOFENADINE\PSEUDOEPHEDRINE
     Dosage: START DATE: SEVERAL DAYS AGO
     Route: 048

REACTIONS (3)
  - Hypotension [Unknown]
  - Myocardial infarction [Unknown]
  - Chest pain [Unknown]
